FAERS Safety Report 8922129 (Version 1)
Quarter: 2012Q4

REPORT INFORMATION
  Report Type: Spontaneous
  Country: ES (occurrence: None)
  Receive Date: 20121109
  Receipt Date: 20121109
  Transmission Date: 20130627
  Serious: Yes (Other)
  Sender: FDA-Public Use
  Company Number: 2012S1000240

PATIENT
  Age: 65 Year
  Sex: Female

DRUGS (7)
  1. CUBICIN [Suspect]
     Indication: PRODUCT USED FOR UNKNOWN INDICATION
     Route: 042
     Dates: start: 20110519, end: 20110531
  2. ALL OTHER THERAPEUTIC PRODUCTS [Concomitant]
  3. OMEPRAZOLE [Concomitant]
  4. ADOLONTA [Concomitant]
  5. PARACETAMOL [Concomitant]
  6. METOCLOPRAMIDE [Concomitant]
  7. HEPARIN [Concomitant]

REACTIONS (1)
  - Muscular weakness [None]
